FAERS Safety Report 19984313 (Version 1)
Quarter: 2021Q4

REPORT INFORMATION
  Report Type: Report from Study
  Country: US (occurrence: US)
  Receive Date: 20211022
  Receipt Date: 20211022
  Transmission Date: 20220303
  Serious: No
  Sender: FDA-Public Use
  Company Number: US-NOVARTISTESTPH-NVSC2021US240940

PATIENT
  Sex: Male

DRUGS (2)
  1. PROMACTA [Interacting]
     Active Substance: ELTROMBOPAG OLAMINE
     Indication: Immune thrombocytopenia
     Dosage: UNK
     Route: 065
  2. CALCIUM [Interacting]
     Active Substance: CALCIUM
     Indication: Immune thrombocytopenia
     Dosage: UNK
     Route: 065

REACTIONS (1)
  - Drug interaction [Unknown]
